FAERS Safety Report 7286326-5 (Version None)
Quarter: 2011Q1

REPORT INFORMATION
  Report Type: 
  Country: None (occurrence: None)
  Receive Date: 20110210
  Receipt Date: 20110131
  Transmission Date: 20110831
  Serious: Yes (Other)
  Sender: FDA-Public Use
  Company Number: PHHY2010US82799

PATIENT
  Sex: Female

DRUGS (3)
  1. GLEEVEC [Suspect]
     Indication: CHRONIC MYELOID LEUKAEMIA
     Dosage: 400 MG DAILY
     Route: 048
     Dates: start: 20100715
  2. MULTIVITAMIN [Concomitant]
     Dosage: UNK
  3. GLEEVEC [Suspect]
     Dosage: 300 MG, DAILY (HALF OF 400 MG TABLET AND ONE 100 MG TABLET)
     Route: 048

REACTIONS (10)
  - RASH [None]
  - DIZZINESS [None]
  - APHAGIA [None]
  - ERYTHEMA [None]
  - SKIN DISCOLOURATION [None]
  - MUCOSAL INFLAMMATION [None]
  - ORAL PAIN [None]
  - SKIN EXFOLIATION [None]
  - ULCER [None]
  - DECREASED APPETITE [None]
